APPROVED DRUG PRODUCT: SERPASIL-ESIDRIX #2
Active Ingredient: HYDROCHLOROTHIAZIDE; RESERPINE
Strength: 50MG;0.1MG
Dosage Form/Route: TABLET;ORAL
Application: N011878 | Product #005
Applicant: NOVARTIS PHARMACEUTICALS CORP
Approved: Approved Prior to Jan 1, 1982 | RLD: No | RS: No | Type: DISCN